FAERS Safety Report 9281443 (Version 1)
Quarter: 2013Q2

REPORT INFORMATION
  Report Type: Spontaneous
  Country: TR (occurrence: TR)
  Receive Date: 20130509
  Receipt Date: 20130509
  Transmission Date: 20140414
  Serious: Yes (Hospitalization)
  Sender: FDA-Public Use
  Company Number: TR-ROXANE LABORATORIES, INC.-2013-RO-00701RO

PATIENT
  Age: 53 Year
  Sex: Female

DRUGS (5)
  1. CLOPIDOGREL [Suspect]
     Indication: ANTIPLATELET THERAPY
     Dosage: 75 MG
  2. ACETYLSALICYLIC ACID [Suspect]
     Indication: ANTIPLATELET THERAPY
     Dosage: 100 MG
  3. TRIBULUS TERRESTRIS ROOT [Suspect]
  4. AVENA SATIVA [Suspect]
  5. PANAX GINSENG FRUIT [Suspect]

REACTIONS (2)
  - Acute coronary syndrome [Recovered/Resolved]
  - Drug interaction [Recovered/Resolved]
